FAERS Safety Report 10059857 (Version 2)
Quarter: 2014Q3

REPORT INFORMATION
  Report Type: Spontaneous
  Country: US (occurrence: US)
  Receive Date: 20140404
  Receipt Date: 20140828
  Transmission Date: 20150326
  Serious: Yes (Hospitalization)
  Sender: FDA-Public Use
  Company Number: US-ENDO PHARMACEUTICALS INC.-HCDA20140049

PATIENT
  Age: 74 Year
  Sex: Female
  Weight: 116.22 kg

DRUGS (1)
  1. HYDROCODONE BITARTRATE AND ACETOMINOPHEN [Suspect]
     Active Substance: ACETAMINOPHEN\HYDROCODONE BITARTRATE
     Indication: BACK PAIN
     Dosage: 22.5MG/975MG
     Route: 048
     Dates: start: 2014, end: 2014

REACTIONS (2)
  - Renal impairment [Recovered/Resolved]
  - Dyspnoea [Recovered/Resolved]

NARRATIVE: CASE EVENT DATE: 20140317
